FAERS Safety Report 17527995 (Version 4)
Quarter: 2021Q4

REPORT INFORMATION
  Report Type: Spontaneous
  Country: US (occurrence: US)
  Receive Date: 20200311
  Receipt Date: 20211014
  Transmission Date: 20220303
  Serious: Yes (Other)
  Sender: FDA-Public Use
  Company Number: US-GILEAD-2020-0454493

PATIENT
  Sex: Male

DRUGS (35)
  1. ATRIPLA [Suspect]
     Active Substance: EFAVIRENZ\EMTRICITABINE\TENOFOVIR DISOPROXIL FUMARATE
     Indication: HIV infection
     Dosage: UNK
     Route: 048
     Dates: start: 20090130, end: 20190327
  2. ATRIPLA [Suspect]
     Active Substance: EFAVIRENZ\EMTRICITABINE\TENOFOVIR DISOPROXIL FUMARATE
     Dosage: UNK
     Route: 048
     Dates: start: 201401, end: 201412
  3. ATRIPLA [Suspect]
     Active Substance: EFAVIRENZ\EMTRICITABINE\TENOFOVIR DISOPROXIL FUMARATE
     Dosage: UNK
     Route: 048
     Dates: start: 201610, end: 201903
  4. ATRIPLA [Suspect]
     Active Substance: EFAVIRENZ\EMTRICITABINE\TENOFOVIR DISOPROXIL FUMARATE
     Dosage: UNK
     Route: 048
     Dates: start: 200901, end: 201807
  5. BIKTARVY [Concomitant]
     Active Substance: BICTEGRAVIR SODIUM\EMTRICITABINE\TENOFOVIR ALAFENAMIDE FUMARATE
  6. CLONAZEPAM [Concomitant]
     Active Substance: CLONAZEPAM
  7. PHENOBARBITAL [Concomitant]
     Active Substance: PHENOBARBITAL
  8. DEPAKOTE [Concomitant]
     Active Substance: DIVALPROEX SODIUM
  9. FLUTICASONE [Concomitant]
     Active Substance: FLUTICASONE
  10. SULFAMETHOXAZOLE [Concomitant]
     Active Substance: SULFAMETHOXAZOLE
  11. PIROXICAM [Concomitant]
     Active Substance: PIROXICAM
  12. FLUCONAZOLE [Concomitant]
     Active Substance: FLUCONAZOLE
  13. AZITHROMYCIN ANHYDROUS [Concomitant]
     Active Substance: AZITHROMYCIN ANHYDROUS
  14. PREDNISONE [Concomitant]
     Active Substance: PREDNISONE
  15. DIPHENHYDRAMINE [Concomitant]
     Active Substance: DIPHENHYDRAMINE
  16. HYDROCODONE [Concomitant]
     Active Substance: HYDROCODONE
  17. DOXYCYCLINE [Concomitant]
     Active Substance: DOXYCYCLINE
  18. MUPIROCIN [Concomitant]
     Active Substance: MUPIROCIN
  19. TOPIRAMATE [Concomitant]
     Active Substance: TOPIRAMATE
  20. CARISOPRODOL [Concomitant]
     Active Substance: CARISOPRODOL
  21. GABAPENTIN [Concomitant]
     Active Substance: GABAPENTIN
  22. LEVAQUIN [Concomitant]
     Active Substance: LEVOFLOXACIN
  23. LYRICA [Concomitant]
     Active Substance: PREGABALIN
  24. ZETIA [Concomitant]
     Active Substance: EZETIMIBE
  25. ROPINIROLE [Concomitant]
     Active Substance: ROPINIROLE
  26. MIRTAZAPINE [Concomitant]
     Active Substance: MIRTAZAPINE
  27. SIMVASTATIN [Concomitant]
     Active Substance: SIMVASTATIN
  28. LISINOPRIL [Concomitant]
     Active Substance: LISINOPRIL
  29. TIZANIDINE [Concomitant]
     Active Substance: TIZANIDINE
  30. EZETIMIBE [Concomitant]
     Active Substance: EZETIMIBE
  31. OMEPRAZOLE [Concomitant]
     Active Substance: OMEPRAZOLE
  32. ATORVASTATIN [Concomitant]
     Active Substance: ATORVASTATIN
  33. TRAMADOL [Concomitant]
     Active Substance: TRAMADOL
  34. ZONISAMIDE [Concomitant]
     Active Substance: ZONISAMIDE
  35. CYCLOBENZAPRINE [Concomitant]
     Active Substance: CYCLOBENZAPRINE

REACTIONS (14)
  - Chronic kidney disease [Not Recovered/Not Resolved]
  - Multiple fractures [Unknown]
  - Spinal operation [Recovered/Resolved]
  - Osteoporosis [Not Recovered/Not Resolved]
  - Renal failure [Unknown]
  - Pain [Not Recovered/Not Resolved]
  - Emotional distress [Not Recovered/Not Resolved]
  - Anxiety [Not Recovered/Not Resolved]
  - Anhedonia [Not Recovered/Not Resolved]
  - Economic problem [Not Recovered/Not Resolved]
  - Osteopenia [Not Recovered/Not Resolved]
  - Bone disorder [Recovered/Resolved]
  - Rib fracture [Recovered/Resolved]
  - Fibula fracture [Recovered/Resolved]

NARRATIVE: CASE EVENT DATE: 20100101
